FAERS Safety Report 19153896 (Version 2)
Quarter: 2021Q2

REPORT INFORMATION
  Report Type: Report from Study
  Country: US (occurrence: US)
  Receive Date: 20210419
  Receipt Date: 20210524
  Transmission Date: 20210717
  Serious: Yes (Hospitalization, Other)
  Sender: FDA-Public Use
  Company Number: NVSC2021US080884

PATIENT
  Age: 64 Year
  Sex: Male

DRUGS (1)
  1. COSENTYX [Suspect]
     Active Substance: SECUKINUMAB
     Indication: PSORIATIC ARTHROPATHY
     Dosage: 150 MG, QW FOR 5 WEEKS, THEN QMO
     Route: 058
     Dates: start: 202012

REACTIONS (7)
  - Dyspnoea [Not Recovered/Not Resolved]
  - Alopecia [Unknown]
  - Psoriatic arthropathy [Not Recovered/Not Resolved]
  - COVID-19 [Recovering/Resolving]
  - Lung disorder [Not Recovered/Not Resolved]
  - Fatigue [Not Recovered/Not Resolved]
  - Pain [Not Recovered/Not Resolved]

NARRATIVE: CASE EVENT DATE: 202012
